FAERS Safety Report 13245706 (Version 1)
Quarter: 2017Q1

REPORT INFORMATION
  Report Type: Spontaneous
  Country: SE (occurrence: SE)
  Receive Date: 20170217
  Receipt Date: 20170217
  Transmission Date: 20170428
  Serious: No
  Sender: FDA-Public Use
  Company Number: SE-PERNIX THERAPEUTICS-2016PT000141

PATIENT

DRUGS (2)
  1. CEDAX [Suspect]
     Active Substance: CEFTIBUTEN DIHYDRATE
     Indication: URINARY TRACT INFECTION
     Dosage: 400 MG, 1X2 FOR 3 DAYS AND 1X1 FOR 7 DAYS
     Route: 048
     Dates: start: 20160404, end: 20160414
  2. WARAN [Concomitant]
     Active Substance: WARFARIN SODIUM
     Dosage: 2.5 MG, UNK

REACTIONS (1)
  - Arthralgia [Recovered/Resolved]

NARRATIVE: CASE EVENT DATE: 201604
